FAERS Safety Report 22282339 (Version 1)
Quarter: 2023Q2

REPORT INFORMATION
  Report Type: Spontaneous
  Country: US (occurrence: US)
  Receive Date: 20230504
  Receipt Date: 20230504
  Transmission Date: 20230721
  Serious: Yes (Hospitalization)
  Sender: FDA-Public Use
  Company Number: US-ROCHE-3338093

PATIENT
  Age: 55 Year
  Sex: Female

DRUGS (6)
  1. CAPECITABINE [Suspect]
     Active Substance: CAPECITABINE
     Indication: Breast cancer female
     Dosage: TAKE 500 MG 4 TABLETS BY MOUTH EVERY 12 HOURS FOR 7 DAYS AND 7 DAYS OFF
     Route: 048
  2. CAPECITABINE [Suspect]
     Active Substance: CAPECITABINE
     Indication: Lymphoma
     Dosage: TAKE 500 MG 4 TABLETS BY MOUTH EVERY 12 HOURS FOR 7 DAYS AND 7 DAYS OFF
     Route: 048
  3. CAPECITABINE [Suspect]
     Active Substance: CAPECITABINE
     Indication: Metastases to bone
     Dosage: TAKE 500 MG 4 TABLETS BY MOUTH EVERY 12 HOURS FOR 7 DAYS AND 7 DAYS OFF
     Route: 048
  4. CAPECITABINE [Suspect]
     Active Substance: CAPECITABINE
     Indication: Breast cancer female
  5. CAPECITABINE [Suspect]
     Active Substance: CAPECITABINE
     Indication: Lymphoma
  6. CAPECITABINE [Suspect]
     Active Substance: CAPECITABINE
     Indication: Metastases to bone

REACTIONS (1)
  - Intracardiac thrombus [Unknown]
